FAERS Safety Report 12540594 (Version 2)
Quarter: 2016Q3

REPORT INFORMATION
  Report Type: Spontaneous
  Country: US (occurrence: US)
  Receive Date: 20160708
  Receipt Date: 20160902
  Transmission Date: 20161109
  Serious: Yes (Other)
  Sender: FDA-Public Use
  Company Number: US-TEVA-650933USA

PATIENT
  Sex: Female
  Weight: 68.1 kg

DRUGS (10)
  1. ESTRASTEP [Concomitant]
     Indication: CONTRACEPTION
  2. SPIRIVA [Concomitant]
     Active Substance: TIOTROPIUM BROMIDE MONOHYDRATE
  3. ADDERALL XR [Concomitant]
     Active Substance: AMPHETAMINE ASPARTATE\AMPHETAMINE SULFATE\DEXTROAMPHETAMINE SACCHARATE\DEXTROAMPHETAMINE SULFATE
  4. ALLEGRA [Concomitant]
     Active Substance: FEXOFENADINE HYDROCHLORIDE
  5. PROAIR HFA [Concomitant]
     Active Substance: ALBUTEROL SULFATE
  6. ADVAIR HFA [Concomitant]
     Active Substance: FLUTICASONE PROPIONATE\SALMETEROL XINAFOATE
  7. HYDROCHLOROTHIAZIDE. [Concomitant]
     Active Substance: HYDROCHLOROTHIAZIDE
  8. PENTASA [Concomitant]
     Active Substance: MESALAMINE
  9. BOTOX [Concomitant]
     Active Substance: ONABOTULINUMTOXINA
     Indication: MIGRAINE
  10. ZECUITY [Suspect]
     Active Substance: SUMATRIPTAN SUCCINATE
     Indication: MIGRAINE
     Dosage: 6.5 MG OVER 4 HOURS
     Route: 062

REACTIONS (14)
  - Application site paraesthesia [Recovered/Resolved]
  - Application site irritation [Recovered/Resolved]
  - Application site papules [Recovered/Resolved]
  - Application site erythema [Recovered/Resolved]
  - Application site pruritus [Recovered/Resolved]
  - Application site scab [Recovered/Resolved]
  - Incorrect drug administration duration [Unknown]
  - Product leakage [Unknown]
  - Application site urticaria [Recovered/Resolved]
  - Application site warmth [Recovered/Resolved]
  - Application site exfoliation [Recovered/Resolved]
  - Application site burn [Recovered/Resolved]
  - Application site erosion [Recovered/Resolved]
  - Application site vesicles [Recovered/Resolved]
